FAERS Safety Report 7829922-6 (Version None)
Quarter: 2011Q4

REPORT INFORMATION
  Report Type: 
  Country: None (occurrence: None)
  Receive Date: 20111021
  Receipt Date: 20111003
  Transmission Date: 20120403
  Serious: Yes (Hospitalization, Other)
  Sender: FDA-Public Use
  Company Number: US-BAYER-2010-006131

PATIENT
  Sex: Female
  Weight: 99.773 kg

DRUGS (7)
  1. YASMIN [Suspect]
     Indication: MENSTRUATION IRREGULAR
  2. ALBUTEROL [Concomitant]
     Dosage: UNK
     Dates: start: 19920101
  3. ASCORBIC ACID [Concomitant]
  4. PREDNISONE [Concomitant]
     Dosage: UNK
     Dates: start: 19920101
  5. ZYRTEC [Concomitant]
     Dosage: UNK
     Dates: start: 19960101
  6. YASMIN [Suspect]
     Indication: CONTRACEPTION
     Dosage: UNK
     Dates: start: 20060101, end: 20070101
  7. LISINOPRIL [Concomitant]
     Dosage: UNK
     Dates: start: 20070101

REACTIONS (7)
  - MUSCULAR WEAKNESS [None]
  - HEADACHE [None]
  - AMNESIA [None]
  - CONFUSIONAL STATE [None]
  - ABDOMINAL PAIN [None]
  - CEREBROVASCULAR ACCIDENT [None]
  - CEREBRAL VENOUS THROMBOSIS [None]
